FAERS Safety Report 9773768 (Version 1)
Quarter: 2013Q4

REPORT INFORMATION
  Report Type: Report from Study
  Country: US (occurrence: US)
  Receive Date: 20131219
  Receipt Date: 20131219
  Transmission Date: 20140711
  Serious: Yes (Other)
  Sender: FDA-Public Use
  Company Number: US-ROCHE-1321037

PATIENT
  Sex: Female
  Weight: 59.02 kg

DRUGS (7)
  1. NUTROPIN AQ [Suspect]
     Indication: GROWTH HORMONE DEFICIENCY
     Dosage: FREQUENCY: QD?FORM STRENGTH: 10 MG/2 ML
     Route: 058
  2. CYMBALTA [Concomitant]
     Dosage: DELAYED RELEASE
     Route: 048
  3. WELLBUTRIN XL [Concomitant]
     Dosage: EXTENDED RELEASE
     Route: 048
     Dates: end: 20131022
  4. VITAMIN C [Concomitant]
     Dosage: PRN
     Route: 048
  5. METFORMIN HYDROCHLORIDE [Concomitant]
     Dosage: WITH MEAL
     Route: 048
  6. BACLOFEN [Concomitant]
  7. SPIRONOLACTONE [Concomitant]
     Route: 065

REACTIONS (2)
  - Fatigue [Unknown]
  - Alopecia [Unknown]
